FAERS Safety Report 8866273 (Version 2)
Quarter: 2012Q4

REPORT INFORMATION
  Report Type: Report from Study
  Country: JP (occurrence: JP)
  Receive Date: 20121025
  Receipt Date: 20121214
  Transmission Date: 20130627
  Serious: Yes (Death, Life-Threatening, Other)
  Sender: FDA-Public Use
  Company Number: JP-ROCHE-CID000000002200867

PATIENT
  Age: 55 Year
  Sex: Male

DRUGS (6)
  1. VALGANCICLOVIR [Suspect]
     Indication: INFECTION IN AN IMMUNOCOMPROMISED HOST
     Route: 048
     Dates: start: 20100411, end: 20100417
  2. VALGANCICLOVIR [Suspect]
     Route: 048
     Dates: start: 20100425, end: 20100501
  3. MYCOPHENOLATE MOFETIL [Suspect]
     Indication: TRANSPLANT REJECTION
     Route: 048
     Dates: start: 20100422
  4. MYCOPHENOLATE MOFETIL [Suspect]
     Route: 048
     Dates: start: 20100423, end: 20100505
  5. MYCOPHENOLATE MOFETIL [Suspect]
     Route: 048
     Dates: start: 20100506
  6. LASIX [Concomitant]
     Route: 048

REACTIONS (2)
  - Arrhythmia [Fatal]
  - Granulocytopenia [Recovering/Resolving]
